FAERS Safety Report 8204834-7 (Version None)
Quarter: 2012Q1

REPORT INFORMATION
  Report Type: 
  Country: None (occurrence: None)
  Receive Date: 20120309
  Receipt Date: 20120224
  Transmission Date: 20120608
  Serious: Yes (Other)
  Sender: FDA-Public Use
  Company Number: DSM-2012-00252

PATIENT
  Age: 41 Year
  Sex: Male

DRUGS (1)
  1. KONVERGE (OLMESARTAN MEDOXOMIL, AMLODIPINE BESILATE) (TABLET) (OLMESAR [Suspect]
     Indication: HYPERTENSION
     Dosage: 40/10 MG, ORAL
     Route: 048
     Dates: start: 20120103

REACTIONS (2)
  - ERECTILE DYSFUNCTION [None]
  - DIZZINESS [None]
